FAERS Safety Report 9721410 (Version 1)
Quarter: 2013Q4

REPORT INFORMATION
  Report Type: Spontaneous
  Country: US (occurrence: US)
  Receive Date: 20131129
  Receipt Date: 20131129
  Transmission Date: 20140711
  Serious: Yes (Hospitalization, Other)
  Sender: FDA-Public Use
  Company Number: US-ELI_LILLY_AND_COMPANY-US201311007387

PATIENT
  Sex: Female

DRUGS (3)
  1. HUMALOG 50% LISPRO, 50% NPL [Suspect]
     Indication: TYPE 2 DIABETES MELLITUS
     Dosage: 60 U, QID
     Route: 065
     Dates: start: 1998
  2. OXYCODONE [Concomitant]
     Dosage: UNK, PRN
  3. STOOL SOFTENER [Concomitant]

REACTIONS (2)
  - Localised intraabdominal fluid collection [Unknown]
  - Weight decreased [Unknown]
